FAERS Safety Report 23952235 (Version 1)
Quarter: 2024Q2

REPORT INFORMATION
  Report Type: Spontaneous
  Country: DE (occurrence: None)
  Receive Date: 20240607
  Receipt Date: 20240607
  Transmission Date: 20240715
  Serious: Yes (Life-Threatening)
  Sender: FDA-Public Use
  Company Number: 2024A132728

PATIENT
  Sex: Female

DRUGS (1)
  1. ONDEXXYA [Suspect]
     Active Substance: ANDEXANET ALFA
     Route: 041

REACTIONS (4)
  - General physical health deterioration [Unknown]
  - Urosepsis [Unknown]
  - Vomiting [Unknown]
  - Disturbance in attention [Unknown]
